FAERS Safety Report 7618703-4 (Version None)
Quarter: 2011Q3

REPORT INFORMATION
  Report Type: 
  Country: None (occurrence: None)
  Receive Date: 20110718
  Receipt Date: 20110707
  Transmission Date: 20111222
  Serious: Yes (Hospitalization, Other)
  Sender: FDA-Public Use
  Company Number: US-ELI_LILLY_AND_COMPANY-US201107003046

PATIENT
  Sex: Female

DRUGS (6)
  1. PREDNISONE [Concomitant]
  2. THYROID TAB [Concomitant]
  3. VITAMIN D [Concomitant]
  4. ASACOL [Concomitant]
  5. FORTEO [Suspect]
     Indication: OSTEOPOROSIS
     Dosage: 20 UG, QD
  6. CALCIUM CARBONATE [Concomitant]

REACTIONS (5)
  - THROMBOSIS [None]
  - URINARY TRACT INFECTION [None]
  - PNEUMONIA [None]
  - CONTUSION [None]
  - COUGH [None]
